FAERS Safety Report 11180978 (Version 1)
Quarter: 2015Q2

REPORT INFORMATION
  Report Type: Spontaneous
  Country: US (occurrence: US)
  Receive Date: 20150611
  Receipt Date: 20150611
  Transmission Date: 20150821
  Serious: No
  Sender: FDA-Public Use
  Company Number: US-009507513-1505USA005853

PATIENT
  Sex: Female

DRUGS (1)
  1. NEXPLANON [Suspect]
     Active Substance: ETONOGESTREL
     Indication: CONTRACEPTION
     Dosage: 1 IMPLANT/EVERY 3 YEARS,IN THE ARM
     Route: 059
     Dates: start: 20150414, end: 20150512

REACTIONS (3)
  - Contusion [Unknown]
  - Pain in extremity [Unknown]
  - Periodic limb movement disorder [Unknown]

NARRATIVE: CASE EVENT DATE: 20150416
